FAERS Safety Report 8147127-9 (Version None)
Quarter: 2012Q1

REPORT INFORMATION
  Report Type: 
  Country: None (occurrence: None)
  Receive Date: 20120218
  Receipt Date: 20110117
  Transmission Date: 20120608
  Serious: No
  Sender: FDA-Public Use
  Company Number: US-ALLERGAN-1100669US

PATIENT
  Sex: Female

DRUGS (3)
  1. BOTOX COSMETIC [Suspect]
     Indication: SKIN WRINKLING
     Dosage: UNK
     Dates: start: 20110113, end: 20110113
  2. JUVEDERM ULTRA PLUS [Concomitant]
     Indication: SKIN WRINKLING
     Dosage: UNK
  3. ASCORBIC ACID [Concomitant]

REACTIONS (2)
  - HYPERSENSITIVITY [None]
  - SINUSITIS [None]
